FAERS Safety Report 11071403 (Version 1)
Quarter: 2015Q2

REPORT INFORMATION
  Report Type: Spontaneous
  Country: IT (occurrence: None)
  Receive Date: 20150424
  Receipt Date: 20150424
  Transmission Date: 20150821
  Serious: Yes (Hospitalization)
  Sender: FDA-Public Use
  Company Number: IT-ZYDUS-007761

PATIENT
  Age: 65 Year
  Sex: Male

DRUGS (3)
  1. AMLODIPINE [Suspect]
     Active Substance: AMLODIPINE BESYLATE
     Dosage: 1.0DAYS
  2. AMLODIPINE [Suspect]
     Active Substance: AMLODIPINE BESYLATE
     Indication: PRODUCT USED FOR UNKNOWN INDICATION
     Dosage: 1.0DAYS
  3. RIBAVIRIN (RIBAVIRIN) [Suspect]
     Active Substance: RIBAVIRIN
     Indication: CHRONIC HEPATITIS C

REACTIONS (3)
  - Drug interaction [None]
  - Blood creatinine increased [None]
  - Blood glucose increased [None]
